FAERS Safety Report 17777779 (Version 1)
Quarter: 2020Q2

REPORT INFORMATION
  Report Type: Spontaneous
  Country: DE (occurrence: DE)
  Receive Date: 20200513
  Receipt Date: 20200513
  Transmission Date: 20200714
  Serious: Yes (Other)
  Sender: FDA-Public Use
  Company Number: DE-MICRO LABS LIMITED-ML2020-01517

PATIENT
  Age: 66 Year
  Sex: Male
  Weight: 90.5 kg

DRUGS (9)
  1. TELMISARTAN-RATIOPHARM 40MG [Suspect]
     Active Substance: TELMISARTAN
     Indication: MYOCARDIAL INFARCTION
     Dosage: 1X T?GLICH MORGENS
     Dates: start: 2013, end: 202002
  2. SIMVABETA 40 MG FILMTABLETTEN [Concomitant]
     Active Substance: SIMVASTATIN
     Dosage: 1 TABLETTE AM ABEND
  3. TELMISARTAN. [Suspect]
     Active Substance: TELMISARTAN
     Indication: MYOCARDIAL INFARCTION
  4. HERZASS-RATIOPHARM [Concomitant]
     Dosage: AM MITTAG 1 TABL.
  5. TELMISARTAN-RATIOPHARM 40MG [Suspect]
     Active Substance: TELMISARTAN
     Indication: STENT PLACEMENT
  6. MICARDIS [Suspect]
     Active Substance: TELMISARTAN
     Indication: STENT PLACEMENT
     Dosage: 1X T?GLICH MORGENS
     Dates: start: 2010, end: 2013
  7. MICARDIS [Suspect]
     Active Substance: TELMISARTAN
     Indication: MYOCARDIAL INFARCTION
  8. TELMISARTAN. [Suspect]
     Active Substance: TELMISARTAN
     Indication: STENT PLACEMENT
     Dosage: 1X DAILY IN THE MORNING
     Dates: start: 202003
  9. BISOPROLOL-RATIOPHARM [Concomitant]
     Active Substance: BISOPROLOL
     Dosage: AM MORGEN 1/2 TABLETTE

REACTIONS (7)
  - Throat clearing [Unknown]
  - Cough [Recovered/Resolved]
  - Respiratory tract infection [Unknown]
  - Cough [Unknown]
  - Larynx irritation [Recovered/Resolved]
  - Nasopharyngitis [Unknown]
  - Pharyngitis [Unknown]

NARRATIVE: CASE EVENT DATE: 20200330
